FAERS Safety Report 10086228 (Version 1)
Quarter: 2014Q2

REPORT INFORMATION
  Report Type: Spontaneous
  Country: GB (occurrence: GB)
  Receive Date: 20140418
  Receipt Date: 20140418
  Transmission Date: 20141212
  Serious: Yes (Death)
  Sender: FDA-Public Use
  Company Number: GB-TEVA-474240ISR

PATIENT
  Age: 51 Year
  Sex: Male

DRUGS (11)
  1. WARFARIN [Suspect]
  2. ZAPONEX [Suspect]
     Indication: SCHIZOPHRENIA
     Dosage: 100MG MORNING, 200MG AT NIGHT
     Route: 048
     Dates: start: 20100706, end: 20140124
  3. UNSPECIFIED MEDICATION [Concomitant]
     Dosage: 400 MILLIGRAM DAILY;
  4. ADCAL-D3 [Concomitant]
     Dosage: 10 MILLIGRAM DAILY;
  5. DILTIAZEM [Concomitant]
     Dosage: 60 MILLIGRAM DAILY;
  6. FLUOXETINE [Concomitant]
     Dosage: 20 MILLIGRAM DAILY; IN THE MORNING
  7. FORTISIP [Concomitant]
  8. HYDROXOCOBALAMIN [Concomitant]
  9. MESALAZINE [Concomitant]
     Dosage: 3 GRAM DAILY;
  10. PREDNISOLONE [Concomitant]
     Dosage: 40 MILLIGRAM DAILY;
  11. PREGABALIN [Concomitant]
     Dosage: 400 MILLIGRAM DAILY;

REACTIONS (3)
  - Gastrointestinal haemorrhage [Fatal]
  - Haemorrhagic diathesis [Fatal]
  - Head injury [Fatal]
